FAERS Safety Report 8029122-3 (Version None)
Quarter: 2012Q1

REPORT INFORMATION
  Report Type: 
  Country: None (occurrence: None)
  Receive Date: 20120106
  Receipt Date: 20111223
  Transmission Date: 20120608
  Serious: Yes (Other)
  Sender: FDA-Public Use
  Company Number: PHHY2011DE72700

PATIENT
  Sex: Female

DRUGS (1)
  1. GILENYA [Suspect]
     Dosage: 0.5 MG, DAILY
     Route: 048
     Dates: start: 20110715

REACTIONS (5)
  - MYALGIA [None]
  - SYNCOPE [None]
  - PAIN IN EXTREMITY [None]
  - NAUSEA [None]
  - DIZZINESS [None]
